FAERS Safety Report 8027744-7 (Version None)
Quarter: 2012Q1

REPORT INFORMATION
  Report Type: 
  Country: None (occurrence: None)
  Receive Date: 20120106
  Receipt Date: 20120106
  Transmission Date: 20120608
  Serious: Yes (Other)
  Sender: FDA-Public Use
  Company Number: None

PATIENT
  Sex: Female
  Weight: 68.038 kg

DRUGS (1)
  1. LEVOBUNOLOL HCL [Suspect]
     Dosage: 1 DROP EACH EYE
     Route: 047

REACTIONS (5)
  - INSTILLATION SITE PAIN [None]
  - INSTILLATION SITE DISCOMFORT [None]
  - PRODUCT QUALITY ISSUE [None]
  - INSTILLATION SITE ERYTHEMA [None]
  - INSTILLATION SITE IRRITATION [None]
